FAERS Safety Report 17432500 (Version 1)
Quarter: 2020Q1

REPORT INFORMATION
  Report Type: Spontaneous
  Country: FR (occurrence: FR)
  Receive Date: 20200218
  Receipt Date: 20200218
  Transmission Date: 20200409
  Serious: Yes (Death, Hospitalization)
  Sender: FDA-Public Use
  Company Number: FR-TEVA-2020-FR-1186961

PATIENT
  Age: 90 Year
  Sex: Male
  Weight: 91 kg

DRUGS (4)
  1. OXYNORMORO 10 MG, COMPRIM? ORODISPERSIBLE [Suspect]
     Active Substance: OXYCODONE HYDROCHLORIDE
     Indication: PAIN
     Dosage: IF NEEDBEED
     Route: 048
     Dates: start: 20190306
  2. OXYCODONE [Suspect]
     Active Substance: OXYCODONE
     Indication: PAIN
     Dosage: SI BESOIN
     Route: 048
     Dates: start: 20190306
  3. LEVOFLOXACINE [Suspect]
     Active Substance: LEVOFLOXACIN
     Indication: PSOAS ABSCESS
     Dosage: 750 MILLIGRAM
     Route: 048
     Dates: start: 20190313, end: 20190406
  4. OXYCODONE [Suspect]
     Active Substance: OXYCODONE
     Dosage: A LIBERATION PROLONGEE
     Route: 048
     Dates: start: 20190306

REACTIONS (1)
  - Subileus [Recovered/Resolved]

NARRATIVE: CASE EVENT DATE: 20190326
